FAERS Safety Report 8322348-0 (Version None)
Quarter: 2012Q2

REPORT INFORMATION
  Report Type: 
  Country: None (occurrence: None)
  Receive Date: 20120426
  Receipt Date: 20120411
  Transmission Date: 20120825
  Serious: Yes (Other)
  Sender: FDA-Public Use
  Company Number: 2012-00635

PATIENT
  Age: 54 Year
  Sex: Male
  Weight: 79.3795 kg

DRUGS (3)
  1. LISINOPRIL [Suspect]
     Indication: HYPERTENSION
     Dosage: 20 MG (20 MG,1 IN 1 D), PER ORAL   40 MG (20 MG, 2 IN 1 D),  PER ORAL
     Route: 048
     Dates: start: 20120410
  2. LISINOPRIL [Suspect]
     Indication: HYPERTENSION
     Dosage: 20 MG (20 MG,1 IN 1 D), PER ORAL   40 MG (20 MG, 2 IN 1 D),  PER ORAL
     Route: 048
     Dates: start: 20120409, end: 20120409
  3. PRAVASTATIN(TABLETS) [Concomitant]

REACTIONS (6)
  - SCLERAL HAEMORRHAGE [None]
  - PRODUCT SUBSTITUTION ISSUE [None]
  - PRODUCT QUALITY ISSUE [None]
  - PARAESTHESIA ORAL [None]
  - DRUG INEFFECTIVE [None]
  - DIZZINESS [None]
